FAERS Safety Report 11621121 (Version 6)
Quarter: 2016Q2

REPORT INFORMATION
  Report Type: Report from Study
  Country: IL (occurrence: IL)
  Receive Date: 20151012
  Receipt Date: 20160524
  Transmission Date: 20160815
  Serious: Yes (Hospitalization)
  Sender: FDA-Public Use
  Company Number: IL-ABBVIE-15P-082-1460411-00

PATIENT
  Age: 54 Year
  Sex: Female

DRUGS (3)
  1. ELTROXIN [Concomitant]
     Active Substance: LEVOTHYROXINE
     Indication: HYPOTHYROIDISM
  2. VIEKIRAX [Suspect]
     Active Substance: OMBITASVIR\PARITAPREVIR\RITONAVIR
     Indication: HEPATITIS C
     Route: 048
     Dates: start: 20150727
  3. EXVIERA [Suspect]
     Active Substance: DASABUVIR
     Indication: HEPATITIS C
     Route: 048
     Dates: start: 20150727

REACTIONS (17)
  - Fungal infection [Recovered/Resolved]
  - Swelling [Recovered/Resolved]
  - Dizziness [Unknown]
  - Fall [Unknown]
  - Nervousness [Unknown]
  - Pruritus [Unknown]
  - Asthenia [Recovered/Resolved]
  - Gait disturbance [Unknown]
  - Feeling abnormal [Unknown]
  - Swelling face [Unknown]
  - Impatience [Unknown]
  - Pain in extremity [Unknown]
  - Peripheral swelling [Unknown]
  - Fatigue [Unknown]
  - Blood pressure increased [Recovered/Resolved]
  - Epistaxis [Unknown]
  - Back pain [Unknown]

NARRATIVE: CASE EVENT DATE: 20150901
